FAERS Safety Report 10162875 (Version 1)
Quarter: 2014Q2

REPORT INFORMATION
  Report Type: Spontaneous
  Country: US (occurrence: US)
  Receive Date: 20140509
  Receipt Date: 20140509
  Transmission Date: 20141212
  Serious: Yes (Other)
  Sender: FDA-Public Use
  Company Number: US-BAYER-2014-064554

PATIENT
  Age: 34 Year
  Sex: Female
  Weight: 127 kg

DRUGS (1)
  1. BAYER ASPIRIN REGIMEN ADULT LOW STRENGTH [Suspect]
     Indication: COAGULOPATHY
     Dosage: 1 DF, QD
     Route: 048
     Dates: start: 2013, end: 201402

REACTIONS (3)
  - Gestational diabetes [None]
  - Off label use [None]
  - Maternal exposure during pregnancy [None]
